FAERS Safety Report 17282055 (Version 1)
Quarter: 2020Q1

REPORT INFORMATION
  Report Type: Spontaneous
  Country: US (occurrence: US)
  Receive Date: 20200117
  Receipt Date: 20200117
  Transmission Date: 20200409
  Serious: Yes (Other)
  Sender: FDA-Public Use
  Company Number: US-TEVA-2020-US-1169772

PATIENT
  Age: 65 Year
  Sex: Male

DRUGS (20)
  1. PRIMIDONE 250 MG [Concomitant]
  2. ASPIRIN. [Concomitant]
     Active Substance: ASPIRIN
  3. BIOTENE MOUTH/THROAT SPRAY [Concomitant]
  4. AUSTEDO [Suspect]
     Active Substance: DEUTETRABENAZINE
     Indication: TARDIVE DYSKINESIA
     Dosage: TWICE A DAY
     Route: 048
     Dates: start: 20191219, end: 20200103
  5. DULOXETINE 30 MG [Concomitant]
     Active Substance: DULOXETINE
  6. GLIMEPIRIDE 4 MG [Concomitant]
     Active Substance: GLIMEPIRIDE
  7. GABAPENTIN 800 MG [Concomitant]
     Active Substance: GABAPENTIN
  8. AUSTEDO [Suspect]
     Active Substance: DEUTETRABENAZINE
     Dosage: TWICE A DAY
     Route: 048
     Dates: start: 20200104
  9. LAMIVUDINE 150 MG [Concomitant]
  10. ABAVAVIR 300 MG [Concomitant]
  11. FENOFIBRATE 54 MG [Concomitant]
  12. TRULICITY 0.75/1.5 ML [Concomitant]
  13. LISINOPRIL 10 MG [Concomitant]
     Active Substance: LISINOPRIL
  14. FLUOXETINE [Concomitant]
     Active Substance: FLUOXETINE HYDROCHLORIDE
  15. NEXIUM 20 MG [Concomitant]
  16. QUETIAPINE 200 MG [Concomitant]
     Active Substance: QUETIAPINE
  17. ALPRAZOLAM 1 MG [Concomitant]
     Active Substance: ALPRAZOLAM
  18. ROPINIROLE 2 MG [Concomitant]
     Active Substance: ROPINIROLE HYDROCHLORIDE
  19. ISENTRESS 400 MG [Concomitant]
  20. PRAVASTATIN 40 MG [Concomitant]
     Active Substance: PRAVASTATIN

REACTIONS (1)
  - Mood altered [Unknown]

NARRATIVE: CASE EVENT DATE: 20200109
